FAERS Safety Report 15917121 (Version 3)
Quarter: 2019Q1

REPORT INFORMATION
  Report Type: Spontaneous
  Country: DE (occurrence: DE)
  Receive Date: 20190205
  Receipt Date: 20190314
  Transmission Date: 20190417
  Serious: Yes (Hospitalization, Other)
  Sender: FDA-Public Use
  Company Number: DE-ACCORD-105377

PATIENT
  Age: 88 Year
  Sex: Male
  Weight: 90 kg

DRUGS (11)
  1. HYDROCHLOROTHIAZIDE. [Suspect]
     Active Substance: HYDROCHLOROTHIAZIDE
     Indication: PRODUCT USED FOR UNKNOWN INDICATION
     Dosage: 25 MG, 1-0-0-0
  2. RAMIPRIL. [Suspect]
     Active Substance: RAMIPRIL
     Indication: PRODUCT USED FOR UNKNOWN INDICATION
     Dosage: 10 MG, 1-0-0-0
  3. EISEN [Concomitant]
     Dosage: 100 MG, 0-0-1-0/JEDEN 2. TAG
  4. INSULIN HUMAN/INSULIN HUMAN BIOSYNTHETIC/INSULIN HUMAN INJECTION/ISOPH/INSULIN HUMAN ZINC SUSPENSION [Concomitant]
     Dosage: NK IE, NACH BZ
  5. CATAPRESAN [Suspect]
     Active Substance: CLONIDINE
     Indication: PRODUCT USED FOR UNKNOWN INDICATION
     Dosage: 300 MG, 1-0-0.5-0
  6. LOCOL [Concomitant]
     Dosage: 20 MG, 0-0-1-0
  7. ASS 100 [Concomitant]
     Active Substance: ASPIRIN
     Dosage: 100 MG, 1-0-0-0
  8. ALLOPURINOL. [Concomitant]
     Active Substance: ALLOPURINOL
     Dosage: 300 MG, 1-0-0-0
  9. CHLORTALIDONE/CLONIDINE HYDROCHLORIDE [Suspect]
     Active Substance: CHLORTHALIDONE\CLONIDINE HYDROCHLORIDE
     Indication: PRODUCT USED FOR UNKNOWN INDICATION
     Dosage: 450 MG, QD
     Route: 065
  10. METFORMIN [Concomitant]
     Active Substance: METFORMIN HYDROCHLORIDE
     Dosage: NK MG, 1-0-0-1
  11. LANTUS [Concomitant]
     Active Substance: INSULIN GLARGINE
     Dosage: 24 IE, 0-0-1-0

REACTIONS (3)
  - Asthenia [Unknown]
  - Product prescribing error [Unknown]
  - Circulatory collapse [Unknown]
